FAERS Safety Report 14233905 (Version 2)
Quarter: 2017Q4

REPORT INFORMATION
  Report Type: Spontaneous
  Country: CH (occurrence: CH)
  Receive Date: 20171129
  Receipt Date: 20171207
  Transmission Date: 20180321
  Serious: Yes (Hospitalization, Other)
  Sender: FDA-Public Use
  Company Number: CH-PFIZER INC-2017506243

PATIENT
  Age: 12 Year
  Sex: Female
  Weight: 28 kg

DRUGS (45)
  1. METHOTREXATE SODIUM. [Interacting]
     Active Substance: METHOTREXATE SODIUM
     Dosage: 12 MG, SINGLE
     Route: 037
     Dates: start: 20170717, end: 20170717
  2. METHOTREXATE SODIUM. [Interacting]
     Active Substance: METHOTREXATE SODIUM
     Dosage: 12 MG, SINGLE
     Route: 037
     Dates: start: 20170802, end: 20170802
  3. MESNA. [Suspect]
     Active Substance: MESNA
     Dosage: UNK
     Dates: start: 20170523, end: 20170523
  4. FORTECORTIN /00016001/ [Suspect]
     Active Substance: DEXAMETHASONE
     Dosage: 6 MG, DAILY
     Route: 048
     Dates: start: 20170918, end: 20170923
  5. ONDANSETRON [Concomitant]
     Active Substance: ONDANSETRON
     Dosage: 4 MG, 2X/DAY
     Route: 041
     Dates: start: 20171010, end: 20171011
  6. MEROPENEM. [Concomitant]
     Active Substance: MEROPENEM
     Dosage: 1200 MG, 3X/DAY
     Dates: start: 20171001, end: 20171006
  7. MORPHIN [Concomitant]
     Active Substance: MORPHINE
     Dosage: UNK
     Dates: start: 20170930, end: 20171007
  8. NALOXON [Concomitant]
     Active Substance: NALOXONE HYDROCHLORIDE
     Dosage: UNK
     Route: 041
     Dates: start: 20170930, end: 20171007
  9. ADRIBLASTIN [Suspect]
     Active Substance: DOXORUBICIN HYDROCHLORIDE
     Dosage: 32 MG, SINGLE (30MG/M2/DAY)
     Route: 042
     Dates: start: 20170918, end: 20170918
  10. ENDOXAN /00021101/ [Suspect]
     Active Substance: CYCLOPHOSPHAMIDE
     Dosage: 1050 MG, SINGLE
     Route: 041
     Dates: start: 20170523, end: 20170523
  11. PARACETAMOL [Concomitant]
     Active Substance: ACETAMINOPHEN
     Dosage: 600 MG, UNK
     Route: 041
     Dates: start: 20170926, end: 20171008
  12. METHOTREXATE SODIUM. [Interacting]
     Active Substance: METHOTREXATE SODIUM
     Dosage: 5300 MG, SINGLE (530+4770 MG )
     Route: 041
     Dates: start: 20170703, end: 20170704
  13. VINCRISTINE SULFATE. [Suspect]
     Active Substance: VINCRISTINE SULFATE
     Dosage: 1.6 MG, SINGLE (1.5MG/M2/DAY)
     Route: 041
     Dates: start: 20170908, end: 20170908
  14. ENDOXAN /00021101/ [Suspect]
     Active Substance: CYCLOPHOSPHAMIDE
     Dosage: 1050 MG, SINGLE
     Route: 041
     Dates: start: 20170408, end: 20170408
  15. FUROSEMID [Concomitant]
     Active Substance: FUROSEMIDE
     Dosage: 15 MG, SINGLE
     Route: 041
     Dates: start: 20171011, end: 20171011
  16. FLUCONAZOL [Concomitant]
     Active Substance: FLUCONAZOLE
     Dosage: 1 DF, UNK
     Dates: start: 20170930, end: 20171001
  17. METHOTREXATE SODIUM. [Interacting]
     Active Substance: METHOTREXATE SODIUM
     Dosage: 5350 MG, SINGLE (535+4815 MG)
     Route: 041
     Dates: start: 20170802, end: 20170803
  18. VINCRISTINE SULFATE. [Suspect]
     Active Substance: VINCRISTINE SULFATE
     Dosage: 1.6 MG, SINGLE (1.5MG/M2/DAY)
     Route: 041
     Dates: start: 20170901, end: 20170901
  19. VINCRISTINE SULFATE. [Suspect]
     Active Substance: VINCRISTINE SULFATE
     Dosage: 1.6 MG, SINGLE
     Route: 041
     Dates: start: 20170311, end: 20170311
  20. AMPHOTERICIN B. [Suspect]
     Active Substance: AMPHOTERICIN B
     Dosage: 90 MG, 1X/DAY
     Route: 041
     Dates: start: 20171002, end: 20171006
  21. TAVEGYL [Concomitant]
     Active Substance: CLEMASTINE FUMARATE
     Dosage: 1 MG, 1X/DAY
     Route: 041
     Dates: start: 20171002, end: 20171003
  22. METHOTREXATE SODIUM. [Suspect]
     Active Substance: METHOTREXATE SODIUM
     Dosage: 12 MG, SINGLE
     Route: 037
     Dates: start: 20170306, end: 20170306
  23. ADRIBLASTIN [Suspect]
     Active Substance: DOXORUBICIN HYDROCHLORIDE
     Dosage: 32 MG, SINGLE (30MG/M2/DAY)
     Route: 042
     Dates: start: 20170925, end: 20170925
  24. CYTARABINE. [Interacting]
     Active Substance: CYTARABINE
     Dosage: 80 MG, UNK
     Route: 041
     Dates: start: 20171019, end: 20171022
  25. VINCRISTINE SULFATE. [Suspect]
     Active Substance: VINCRISTINE SULFATE
     Dosage: 1.6 MG, SINGLE (1.5MG/M2/DAY)
     Route: 041
     Dates: start: 20170925, end: 20170925
  26. PEG/L-ASPARAGINASE [Suspect]
     Active Substance: PEGASPARGASE
     Dosage: 2600 IU, DAILY
     Route: 041
     Dates: start: 20170901, end: 20170901
  27. PEG/L-ASPARAGINASE [Suspect]
     Active Substance: PEGASPARGASE
     Dosage: 2700 IU, SINGLE
     Route: 041
     Dates: start: 20170315, end: 20170315
  28. FORTAM [Concomitant]
     Active Substance: CEFTAZIDIME
     Dosage: 150 MG/KG, 3X/DAY
     Dates: start: 20170927, end: 20171001
  29. METHOTREXATE SODIUM. [Interacting]
     Active Substance: METHOTREXATE SODIUM
     Dosage: 12 MG, 1X/DAY, SINGLE DOSE FROM 13OCT2017 TO 20OCT2017
     Route: 037
     Dates: start: 20171012, end: 20171020
  30. ADRIBLASTIN [Suspect]
     Active Substance: DOXORUBICIN HYDROCHLORIDE
     Dosage: 32 MG, SINGLE (30MG/M2/DAY)
     Route: 042
     Dates: start: 20170901, end: 20170901
  31. CYTARABINE. [Interacting]
     Active Substance: CYTARABINE
     Dosage: 80 MG, UNK
     Route: 041
     Dates: start: 20171012, end: 20171015
  32. LANVIS [Suspect]
     Active Substance: THIOGUANINE ANHYDROUS
     Dosage: 60 MG, 1X/DAY
     Route: 048
     Dates: start: 20171009, end: 20171023
  33. METHOTREXATE SODIUM. [Interacting]
     Active Substance: METHOTREXATE SODIUM
     Dosage: 12 MG, SINGLE
     Route: 037
     Dates: start: 20170619, end: 20170619
  34. METHOTREXATE SODIUM. [Interacting]
     Active Substance: METHOTREXATE SODIUM
     Dosage: 12 MG, SINGLE
     Route: 037
     Dates: start: 20170703, end: 20170703
  35. ADRIBLASTIN [Suspect]
     Active Substance: DOXORUBICIN HYDROCHLORIDE
     Dosage: 32 MG, SINGLE (30MG/M2/DAY)
     Route: 042
     Dates: start: 20170908, end: 20170908
  36. VINCRISTINE SULFATE. [Suspect]
     Active Substance: VINCRISTINE SULFATE
     Dosage: 1.6 MG, SINGLE (1.5MG/M2/DAY)
     Route: 041
     Dates: start: 20170918, end: 20170918
  37. FORTECORTIN /00016001/ [Suspect]
     Active Substance: DEXAMETHASONE
     Dosage: 11 MG, DAILY (10MG/M2/DAY)
     Route: 048
     Dates: start: 20170828, end: 20170917
  38. NOPIL [Concomitant]
     Active Substance: SULFAMETHOXAZOLE\TRIMETHOPRIM
     Dosage: 160 MG, 2X/WEEK
     Dates: start: 20170915
  39. TRAMADOL. [Concomitant]
     Active Substance: TRAMADOL
     Dosage: UNK
     Dates: start: 20170930, end: 20170930
  40. AMIKACIN [Concomitant]
     Active Substance: AMIKACIN
     Dosage: UNK
     Route: 041
     Dates: start: 20170927, end: 20171001
  41. METHOTREXATE SODIUM. [Interacting]
     Active Substance: METHOTREXATE SODIUM
     Dosage: 5350 MG, SINGLE (535+4815 MG)
     Route: 041
     Dates: start: 20170619, end: 20170620
  42. METHOTREXATE SODIUM. [Interacting]
     Active Substance: METHOTREXATE SODIUM
     Dosage: 5100 MG, SINGLE (240 + 4860 MG)
     Route: 041
     Dates: start: 20170717, end: 20170718
  43. ENDOXAN /00021101/ [Suspect]
     Active Substance: CYCLOPHOSPHAMIDE
     Dosage: 1070 MG, DAILY
     Route: 041
     Dates: start: 20171010, end: 20171010
  44. MESNA. [Suspect]
     Active Substance: MESNA
     Dosage: 430 MG, DAILY
     Route: 041
     Dates: start: 20171010, end: 20171010
  45. NOVALGIN [Concomitant]
     Active Substance: METAMIZOLE SODIUM
     Dosage: 300 MG, 2X/DAY
     Dates: start: 20171010, end: 20171010

REACTIONS (2)
  - Drug interaction [Recovered/Resolved]
  - Posterior reversible encephalopathy syndrome [Recovered/Resolved]

NARRATIVE: CASE EVENT DATE: 20171012
